FAERS Safety Report 7353858-0 (Version None)
Quarter: 2011Q1

REPORT INFORMATION
  Report Type: 
  Country: None (occurrence: None)
  Receive Date: 20110315
  Receipt Date: 20110308
  Transmission Date: 20110831
  Serious: Yes (Other)
  Sender: FDA-Public Use
  Company Number: US-BAXTER-2011BH004827

PATIENT
  Age: 65 Year
  Sex: Male

DRUGS (8)
  1. VANCOMYCIN HCL [Suspect]
     Indication: ARTHRITIS BACTERIAL
     Route: 042
  2. METFORMIN [Concomitant]
     Indication: TYPE 2 DIABETES MELLITUS
     Route: 065
  3. PIPERACILLIN AND TAZOBACTAM [Concomitant]
     Indication: ARTHRITIS BACTERIAL
     Route: 042
  4. WARFARIN [Concomitant]
     Indication: ANTICOAGULANT THERAPY
     Route: 048
  5. AMLODIPINE [Concomitant]
     Indication: HYPERTENSION
     Route: 065
  6. ASPIRIN [Concomitant]
     Indication: PRODUCT USED FOR UNKNOWN INDICATION
     Route: 048
  7. VANCOMYCIN ANTIBIOTIC SPACER [Suspect]
     Indication: ARTHRITIS BACTERIAL
     Route: 065
  8. CIPROFLOXACIN [Concomitant]
     Indication: ARTHRITIS BACTERIAL
     Route: 042

REACTIONS (1)
  - DRUG RASH WITH EOSINOPHILIA AND SYSTEMIC SYMPTOMS [None]
